FAERS Safety Report 8171699-1 (Version None)
Quarter: 2012Q1

REPORT INFORMATION
  Report Type: 
  Country: None (occurrence: None)
  Receive Date: 20120228
  Receipt Date: 20120213
  Transmission Date: 20120608
  Serious: Yes (Other)
  Sender: FDA-Public Use
  Company Number: FR-WATSON-2012-03128

PATIENT
  Age: 14 Year

DRUGS (1)
  1. LEVETIRACETAM [Suspect]
     Indication: PETIT MAL EPILEPSY
     Dosage: 2000 MG (30 MG/KG, DAILY)

REACTIONS (1)
  - CONVULSION [None]
